FAERS Safety Report 8240638-7 (Version None)
Quarter: 2012Q1

REPORT INFORMATION
  Report Type: 
  Country: None (occurrence: None)
  Receive Date: 20120328
  Receipt Date: 20120322
  Transmission Date: 20120608
  Serious: Yes (Death)
  Sender: FDA-Public Use
  Company Number: BE-PFIZER INC-2012074765

PATIENT

DRUGS (1)
  1. REVATIO [Suspect]

REACTIONS (1)
  - DEATH [None]
